FAERS Safety Report 5560440-4 (Version None)
Quarter: 2007Q4

REPORT INFORMATION
  Report Type: 
  Country: None (occurrence: None)
  Receive Date: 20071215
  Receipt Date: 20071108
  Transmission Date: 20080405
  Serious: No
  Sender: FDA-Public Use
  Company Number: US-ABBOTT-07P-163-0424168-00

PATIENT
  Sex: Female
  Weight: 100 kg

DRUGS (8)
  1. HUMIRA [Suspect]
     Indication: CROHN'S DISEASE
     Dosage: LOADING DOSE
     Route: 058
     Dates: start: 20070901, end: 20071015
  2. HUMIRA [Suspect]
  3. METRONIDAZOLE HCL [Concomitant]
     Indication: FISTULA
     Route: 048
  4. TYLOX [Concomitant]
     Indication: PROCTALGIA
     Dosage: 5/325MG
     Route: 048
  5. MERCAPTOPURINE [Concomitant]
     Indication: CROHN'S DISEASE
     Route: 048
  6. DICYCLOMINE HCL [Concomitant]
     Indication: CROHN'S DISEASE
     Route: 048
  7. DYAZIDE [Concomitant]
     Indication: HYPERTENSION
     Dosage: 37.5/25 MILLIGRAMS
     Route: 048
  8. POTASSIUM CHLORIDE [Concomitant]
     Indication: BLOOD POTASSIUM DECREASED
     Route: 048

REACTIONS (7)
  - CYST DRAINAGE [None]
  - CYST RUPTURE [None]
  - INJECTION SITE ERYTHEMA [None]
  - INJECTION SITE REACTION [None]
  - INJECTION SITE SWELLING [None]
  - PROCTALGIA [None]
  - PYREXIA [None]
